FAERS Safety Report 5336619-3 (Version None)
Quarter: 2007Q2

REPORT INFORMATION
  Report Type: 
  Country: None (occurrence: None)
  Receive Date: 20070529
  Receipt Date: 20070522
  Transmission Date: 20071010
  Serious: Yes (Hospitalization)
  Sender: FDA-Public Use
  Company Number: DE-JNJFOC-20070500987

PATIENT
  Sex: Male
  Weight: 80 kg

DRUGS (4)
  1. HALDOL DECANOAT [Suspect]
     Indication: PSYCHOTIC DISORDER
     Route: 042
  2. HALDOL [Concomitant]
     Indication: PSYCHOTIC DISORDER
     Route: 048
  3. TIMONIL RET. [Concomitant]
     Indication: EPILEPSY
     Route: 048
  4. DIAZEPAM [Concomitant]
     Route: 048

REACTIONS (1)
  - INCORRECT DRUG DOSAGE FORM ADMINISTERED [None]
